FAERS Safety Report 9614551 (Version 1)
Quarter: 2013Q4

REPORT INFORMATION
  Report Type: Report from Study
  Country: AR (occurrence: AR)
  Receive Date: 20131011
  Receipt Date: 20131011
  Transmission Date: 20140711
  Serious: Yes (Death, Hospitalization)
  Sender: FDA-Public Use
  Company Number: PHHY2013AR114152

PATIENT
  Sex: Male

DRUGS (1)
  1. ONBREZ [Suspect]
     Indication: CHRONIC OBSTRUCTIVE PULMONARY DISEASE
     Dosage: UNK UKN, UNK

REACTIONS (5)
  - Sepsis [Fatal]
  - Cardiopulmonary failure [Fatal]
  - Haematuria [Fatal]
  - Bladder disorder [Fatal]
  - Chronic obstructive pulmonary disease [Fatal]
